FAERS Safety Report 15684509 (Version 1)
Quarter: 2018Q4

REPORT INFORMATION
  Report Type: Other
  Country: GB (occurrence: GB)
  Receive Date: 20181204
  Receipt Date: 20181204
  Transmission Date: 20190205
  Serious: Yes (Other)
  Sender: FDA-Public Use
  Company Number: GB-GLENMARK PHARMACEUTICALS-2018GMK038485

PATIENT

DRUGS (1)
  1. LAMOTRIGINE. [Suspect]
     Active Substance: LAMOTRIGINE
     Indication: PRODUCT USED FOR UNKNOWN INDICATION
     Dosage: 100 MG, OD (AS DIRECTED BY THE SPECIALIST)
     Route: 065
     Dates: start: 20170410, end: 20180918

REACTIONS (1)
  - Night sweats [Recovered/Resolved]

NARRATIVE: CASE EVENT DATE: 20170410
